FAERS Safety Report 9775810 (Version 1)
Quarter: 2013Q4

REPORT INFORMATION
  Report Type: Spontaneous
  Country: CA (occurrence: CA)
  Receive Date: 20131220
  Receipt Date: 20131220
  Transmission Date: 20140711
  Serious: Yes (Other)
  Sender: FDA-Public Use
  Company Number: CA-GLAXOSMITHKLINE-A1051319A

PATIENT
  Age: 31 Year
  Sex: Female
  Weight: 52.3 kg

DRUGS (1)
  1. ADVAIR [Suspect]
     Indication: ORTHOPNOEA
     Dosage: 2PUFF TWICE PER DAY
     Route: 055
     Dates: start: 201306, end: 20131125

REACTIONS (6)
  - Pulmonary hypertension [Unknown]
  - Headache [Not Recovered/Not Resolved]
  - Palpitations [Not Recovered/Not Resolved]
  - Syncope [Not Recovered/Not Resolved]
  - Dizziness [Not Recovered/Not Resolved]
  - Hypertension [Not Recovered/Not Resolved]
